FAERS Safety Report 5664940-8 (Version None)
Quarter: 2008Q1

REPORT INFORMATION
  Report Type: 
  Country: None (occurrence: None)
  Receive Date: 20080314
  Receipt Date: 20080304
  Transmission Date: 20080703
  Serious: Yes (Other)
  Sender: FDA-Public Use
  Company Number: US-ELI_LILLY_AND_COMPANY-US200803000814

PATIENT
  Age: 59 Year
  Sex: Female

DRUGS (5)
  1. EVISTA [Suspect]
     Indication: OSTEOPOROSIS
     Dosage: 60 MG, UNK
     Route: 048
     Dates: start: 20080229, end: 20080229
  2. AMITRIPTYLINE HCL [Concomitant]
     Dosage: UNK, EACH EVENING
  3. THYROID TAB [Concomitant]
  4. VIVELLE-DOT [Concomitant]
     Indication: OESTROGEN THERAPY
  5. VITAMIN B12 NOS [Concomitant]

REACTIONS (10)
  - ABDOMINAL DISCOMFORT [None]
  - BLADDER PAIN [None]
  - COUGH [None]
  - CYSTITIS INTERSTITIAL [None]
  - CYSTITIS NONINFECTIVE [None]
  - DIZZINESS [None]
  - DYSURIA [None]
  - GASTROOESOPHAGEAL REFLUX DISEASE [None]
  - PAIN IN EXTREMITY [None]
  - VAGINAL PAIN [None]
